FAERS Safety Report 25912752 (Version 1)
Quarter: 2025Q4

REPORT INFORMATION
  Report Type: Spontaneous
  Country: US (occurrence: US)
  Receive Date: 20251013
  Receipt Date: 20251013
  Transmission Date: 20260117
  Serious: No
  Sender: LEO PHARM
  Company Number: US-LEO Pharma-383303

PATIENT
  Age: 31 Year
  Sex: Female

DRUGS (1)
  1. ADBRY [Suspect]
     Active Substance: TRALOKINUMAB-LDRM
     Indication: Product used for unknown indication
     Dosage: TREATMENT IS ONGOING; 600 MG ON DAY 1 SUBCUTANEOUSLY
     Route: 058

REACTIONS (1)
  - Herpes zoster [Unknown]
